FAERS Safety Report 8590925-8 (Version None)
Quarter: 2012Q3

REPORT INFORMATION
  Report Type: 
  Country: None (occurrence: None)
  Receive Date: 20120813
  Receipt Date: 20120806
  Transmission Date: 20120928
  Serious: Yes (Hospitalization)
  Sender: FDA-Public Use
  Company Number: FR-BAXTER-2012BAX013702

PATIENT
  Sex: Female

DRUGS (6)
  1. CYCLOPHOSPHAMIDE [Suspect]
     Indication: BONE MARROW TRANSPLANT
     Route: 042
     Dates: start: 20120403, end: 20120404
  2. CYCLOPHOSPHAMIDE [Suspect]
     Route: 042
     Dates: start: 20120603, end: 20120604
  3. METHOTREXATE [Suspect]
     Route: 065
     Dates: start: 20120610, end: 20120610
  4. THYMOGLOBULIN [Suspect]
     Indication: BONE MARROW TRANSPLANT
     Route: 065
     Dates: start: 20120604, end: 20120606
  5. METHOTREXATE [Suspect]
     Indication: BONE MARROW TRANSPLANT
     Route: 065
     Dates: start: 20120608, end: 20120608
  6. METHOTREXATE [Suspect]
     Route: 065
     Dates: start: 20120613, end: 20120613

REACTIONS (2)
  - HEPATOMEGALY [None]
  - THROMBOCYTOPENIA [None]
